FAERS Safety Report 15944189 (Version 1)
Quarter: 2019Q1

REPORT INFORMATION
  Report Type: Spontaneous
  Country: IT (occurrence: IT)
  Receive Date: 20190211
  Receipt Date: 20190211
  Transmission Date: 20190417
  Serious: Yes (Life-Threatening, Other)
  Sender: FDA-Public Use
  Company Number: IT-AUROBINDO-AUR-APL-2019-002639

PATIENT

DRUGS (15)
  1. FLUOROURACIL. [Suspect]
     Active Substance: FLUOROURACIL
     Indication: COLORECTAL ADENOCARCINOMA
     Dosage: UNK
     Route: 065
     Dates: start: 20141227
  2. FOLINIC ACID [Suspect]
     Active Substance: LEUCOVORIN
     Indication: METASTASES TO LIVER
     Dosage: UNK UNK, CYCLICAL (11 CYCLES)
     Route: 065
     Dates: start: 20141227
  3. FOLINIC ACID [Suspect]
     Active Substance: LEUCOVORIN
     Dosage: UNK
     Route: 065
     Dates: start: 201807
  4. 5-FU [Suspect]
     Active Substance: FLUOROURACIL
     Indication: COLORECTAL ADENOCARCINOMA
     Dosage: UNK UNK, CYCLICAL (11 CYCLES)
     Route: 065
     Dates: start: 20141227, end: 201505
  5. OXALIPLATIN. [Suspect]
     Active Substance: OXALIPLATIN
     Indication: COLORECTAL ADENOCARCINOMA
     Dosage: UNK UNK, CYCLICAL (11 CYCLES)
     Route: 065
     Dates: start: 20141227
  6. 5-FU [Suspect]
     Active Substance: FLUOROURACIL
     Dosage: UNK, CYCLICAL
     Route: 065
     Dates: start: 20170123, end: 2017
  7. PANITUMUMAB [Suspect]
     Active Substance: PANITUMUMAB
     Indication: METASTASES TO LIVER
     Dosage: UNK, CYCLICAL (4 CYCLES)
     Route: 065
     Dates: start: 201509, end: 201511
  8. 5-FU [Suspect]
     Active Substance: FLUOROURACIL
     Indication: METASTASES TO LIVER
     Dosage: UNK, CYCLICAL (4 CYCLES)
     Route: 065
     Dates: start: 201509, end: 201511
  9. 5-FU [Suspect]
     Active Substance: FLUOROURACIL
     Dosage: UNK
     Route: 065
     Dates: start: 201807
  10. OXALIPLATIN. [Suspect]
     Active Substance: OXALIPLATIN
     Indication: METASTASES TO LIVER
     Dosage: UNK, CYCLICAL (4 CYCLES)
     Route: 065
     Dates: start: 201509
  11. FLUOROURACIL. [Suspect]
     Active Substance: FLUOROURACIL
     Indication: METASTASES TO LIVER
     Dosage: UNK
     Route: 065
     Dates: start: 201509
  12. DOXYCYCLINE. [Concomitant]
     Active Substance: DOXYCYCLINE
     Indication: PROPHYLAXIS
     Dosage: UNK
     Route: 065
  13. PANITUMUMAB [Suspect]
     Active Substance: PANITUMUMAB
     Indication: COLORECTAL ADENOCARCINOMA
     Dosage: UNK UNK, CYCLICAL (11 CYCLES)
     Route: 065
     Dates: start: 20141227, end: 201505
  14. FOLINIC ACID [Suspect]
     Active Substance: LEUCOVORIN
     Dosage: UNK, CYCLICAL
     Route: 065
     Dates: start: 20170123
  15. FOLINIC ACID [Suspect]
     Active Substance: LEUCOVORIN
     Indication: COLORECTAL ADENOCARCINOMA
     Dosage: UNK, CYCLICAL (4 CYCLES)
     Route: 065
     Dates: start: 201509

REACTIONS (6)
  - Neutropenia [Unknown]
  - Hypertension [Recovered/Resolved]
  - Diarrhoea [Unknown]
  - Colorectal cancer metastatic [Unknown]
  - Asthenia [Recovered/Resolved]
  - Rash [Unknown]

NARRATIVE: CASE EVENT DATE: 20150106
